FAERS Safety Report 10080570 (Version 1)
Quarter: 2014Q2

REPORT INFORMATION
  Report Type: Spontaneous
  Country: US (occurrence: US)
  Receive Date: 20140416
  Receipt Date: 20140416
  Transmission Date: 20141212
  Serious: No
  Sender: FDA-Public Use
  Company Number: US-009507513-1404USA002838

PATIENT
  Sex: Female
  Weight: 55.33 kg

DRUGS (3)
  1. NEXPLANON [Suspect]
     Dosage: UNK
     Dates: start: 20140312
  2. XANAX [Concomitant]
  3. PROZAC [Concomitant]

REACTIONS (2)
  - Headache [Not Recovered/Not Resolved]
  - Implant site pruritus [Not Recovered/Not Resolved]
